FAERS Safety Report 6128895-4 (Version None)
Quarter: 2009Q1

REPORT INFORMATION
  Report Type: 
  Country: None (occurrence: None)
  Receive Date: 20090320
  Receipt Date: 20090304
  Transmission Date: 20090719
  Serious: Yes (Hospitalization)
  Sender: FDA-Public Use
  Company Number: DSA_32467_2008

PATIENT
  Sex: Female
  Weight: 205.4795 kg

DRUGS (10)
  1. ENALAPRIL [Suspect]
     Indication: HYPERTENSION
     Dosage: 20 MG BID ORAL
     Route: 048
     Dates: start: 19930101, end: 20080719
  2. HYDROCHLOROTHIAZIDE [Suspect]
     Indication: HYPERTENSION
     Dosage: 25 MG QD ORAL
     Route: 048
     Dates: start: 19930101
  3. BLINDED THERAPY UNK [Concomitant]
     Indication: OBESITY
     Dosage: DF ORAL
     Route: 048
     Dates: start: 20080625, end: 20080714
  4. FELODIPINE [Suspect]
     Indication: HYPERTENSION
     Dosage: 5 MG BID ORAL
     Route: 048
     Dates: start: 19930101, end: 20080724
  5. FELODIPINE [Suspect]
     Indication: HYPERTENSION
     Dosage: 5 MG BID ORAL
     Route: 048
     Dates: start: 20080725
  6. ASPIRIN [Concomitant]
  7. TYLENOL (CAPLET) [Concomitant]
  8. COD-LIVER OIL [Concomitant]
  9. GERITOL /00543501/ [Concomitant]
  10. BLINDED THERAPY [Concomitant]

REACTIONS (2)
  - ANXIETY DISORDER [None]
  - DYSPNOEA [None]
